FAERS Safety Report 6223951-4 (Version None)
Quarter: 2009Q2

REPORT INFORMATION
  Report Type: 
  Country: None (occurrence: None)
  Receive Date: 20090612
  Receipt Date: 20090304
  Transmission Date: 20091009
  Serious: No
  Sender: FDA-Public Use
  Company Number: US-ABBOTT-09P-163-0560803-00

PATIENT
  Sex: Female
  Weight: 90.8 kg

DRUGS (3)
  1. HUMIRA [Suspect]
     Indication: PSORIASIS
     Dates: start: 20090228
  2. TRAMADOL HCL [Concomitant]
     Indication: SPONDYLITIS
  3. ASPIRIN [Concomitant]
     Indication: DISCOMFORT

REACTIONS (6)
  - ERYTHEMA [None]
  - FEELING HOT [None]
  - JOINT SWELLING [None]
  - OEDEMA PERIPHERAL [None]
  - PAIN [None]
  - SINUS DISORDER [None]
